FAERS Safety Report 10954114 (Version 3)
Quarter: 2016Q1

REPORT INFORMATION
  Report Type: Spontaneous
  Country: US (occurrence: US)
  Receive Date: 20150325
  Receipt Date: 20160108
  Transmission Date: 20160525
  Serious: Yes (Death, Hospitalization, Other)
  Sender: FDA-Public Use
  Company Number: US-ASTELLAS-2015US009691

PATIENT
  Sex: Male

DRUGS (1)
  1. XTANDI [Suspect]
     Active Substance: ENZALUTAMIDE
     Indication: PROSTATE CANCER
     Dosage: 160 MG (40 MG X 4 CAPSULES), ONCE DAILY
     Route: 048
     Dates: start: 20150128, end: 20150228

REACTIONS (9)
  - Urinary tract infection [Unknown]
  - Hyperkalaemia [Unknown]
  - Cardiorenal syndrome [Unknown]
  - Death [Fatal]
  - Proteus infection [Unknown]
  - Cardiac failure congestive [Unknown]
  - Klebsiella infection [Unknown]
  - Malignant neoplasm progression [Unknown]
  - Metabolic encephalopathy [Unknown]
